FAERS Safety Report 4440608-0 (Version None)
Quarter: 2004Q3

REPORT INFORMATION
  Report Type: 
  Country: None (occurrence: None)
  Receive Date: 20040831
  Receipt Date: 20040818
  Transmission Date: 20050211
  Serious: Yes (Other)
  Sender: FDA-Public Use
  Company Number: 200310804BCA

PATIENT
  Sex: Female

DRUGS (5)
  1. GAMIMUNE N 10% [Suspect]
     Dosage: 420 + 40 + 140 + 160 TOTAL, DAILY, INTRAVENOUS
     Route: 042
     Dates: start: 20030403
  2. GAMIMUNE N 10% [Suspect]
  3. GAMIMUNE N 10% [Suspect]
  4. GAMIMUNE N 10% [Suspect]
  5. GAMIMUNE N 10% [Concomitant]

REACTIONS (1)
  - HUMAN T-CELL LYMPHOTROPIC VIRUS TYPE I INFECTION [None]
